FAERS Safety Report 21785252 (Version 2)
Quarter: 2023Q1

REPORT INFORMATION
  Report Type: Spontaneous
  Country: US (occurrence: US)
  Receive Date: 20221227
  Receipt Date: 20230122
  Transmission Date: 20230418
  Serious: No
  Sender: FDA-Public Use
  Company Number: US-Calliditas-2022CAL00626

PATIENT
  Age: 75 Year
  Sex: Female

DRUGS (15)
  1. TARPEYO [Suspect]
     Active Substance: BUDESONIDE
     Indication: Haematuria
     Dosage: 16 MG (4 MG CAPSULES) ONCE DAILY
     Route: 048
     Dates: start: 20221202
  2. LOSARTAN [Concomitant]
     Active Substance: LOSARTAN
     Dosage: INCREASED FROM 25 MG TO 50 MG
  3. CLOBETASOL PROPIONATE [Concomitant]
     Active Substance: CLOBETASOL PROPIONATE
     Indication: Cutaneous vasculitis
     Dosage: AS NECESSARY
  4. PROBIOTICS NOS [Concomitant]
     Active Substance: PROBIOTICS NOS
  5. CRANBERRY COMPLEX [Concomitant]
  6. VITAMIN B12 [Concomitant]
     Active Substance: CYANOCOBALAMIN
  7. BIOTIN [Concomitant]
     Active Substance: BIOTIN
  8. VITAMIN D3 [Concomitant]
     Active Substance: CHOLECALCIFEROL
  9. ROSUVASTATIN [Concomitant]
     Active Substance: ROSUVASTATIN
     Dates: start: 2010
  10. BETAMETHASONE [Concomitant]
     Active Substance: BETAMETHASONE
     Dosage: AS NECESSARY
     Dates: start: 201906
  11. ESTRACE [Concomitant]
     Active Substance: ESTRADIOL
     Dosage: TIME INTERVAL: 0.33 WK
     Dates: start: 20210310
  12. AURYXIA [Concomitant]
     Active Substance: TETRAFERRIC TRICITRATE DECAHYDRATE
     Dosage: DECREASED TO 210 MG ONCE DAILY
     Dates: start: 20210709
  13. ALBUTEROL [Concomitant]
     Active Substance: ALBUTEROL
     Dosage: AS NECESSARY
     Dates: start: 20220418
  14. VITAMIN D2 [Concomitant]
     Active Substance: ERGOCALCIFEROL
     Dates: start: 20210603
  15. TYLENOL [Concomitant]
     Active Substance: ACETAMINOPHEN
     Dosage: AS NECESSARY

REACTIONS (4)
  - Irritability [Recovered/Resolved]
  - Dizziness [Recovered/Resolved]
  - Hypertension [Recovered/Resolved]
  - Energy increased [Recovered/Resolved]

NARRATIVE: CASE EVENT DATE: 20221202
